FAERS Safety Report 4399544-0 (Version None)
Quarter: 2004Q3

REPORT INFORMATION
  Report Type: 
  Country: None (occurrence: None)
  Receive Date: 20040716
  Receipt Date: 20040516
  Transmission Date: 20050211
  Serious: Yes (Other)
  Sender: FDA-Public Use
  Company Number: GB-GLAXOSMITHKLINE-B0332930A

PATIENT
  Age: 65 Year
  Sex: Male
  Weight: 25 kg

DRUGS (12)
  1. PAROXETINE HCL [Suspect]
     Indication: DEPRESSION
     Route: 048
  2. ATENOLOL [Concomitant]
     Route: 065
  3. GTN [Concomitant]
     Dosage: 1PUFF AS REQUIRED
     Route: 065
  4. ROSUVASTATIN [Concomitant]
     Dosage: 20MG PER DAY
     Route: 065
  5. RAMIPRIL [Concomitant]
     Dosage: 2.5MG TWICE PER DAY
     Route: 065
  6. CO-PROXAMOL [Concomitant]
     Route: 065
  7. CLOPIDOGREL [Concomitant]
     Dosage: 75MG PER DAY
     Route: 065
  8. MEBEVERINE [Concomitant]
     Dosage: 200MG TWICE PER DAY
     Route: 065
  9. OMEPRAZOLE [Concomitant]
     Dosage: 10MG PER DAY
     Route: 065
  10. IRBESARTAN [Concomitant]
     Dosage: 300MG PER DAY
     Route: 065
  11. CO-AMILOFRUSE [Concomitant]
     Route: 065
  12. DOXAZOSIN [Concomitant]
     Dosage: 1MG PER DAY
     Route: 065

REACTIONS (6)
  - DEPRESSION [None]
  - DIZZINESS [None]
  - HYPERCHLORHYDRIA [None]
  - MUSCLE CRAMP [None]
  - STOMACH DISCOMFORT [None]
  - VISION BLURRED [None]
